FAERS Safety Report 16914402 (Version 1)
Quarter: 2019Q4

REPORT INFORMATION
  Report Type: Spontaneous
  Country: FR (occurrence: FR)
  Receive Date: 20191014
  Receipt Date: 20191014
  Transmission Date: 20200122
  Serious: Yes (Hospitalization)
  Sender: FDA-Public Use
  Company Number: FR-SA-2019SA277438

PATIENT
  Age: 84 Year
  Sex: Male
  Weight: 60 kg

DRUGS (12)
  1. FLUINDIONE [Suspect]
     Active Substance: FLUINDIONE
     Indication: PARACHUTE MITRAL VALVE
     Dosage: 1 DF, QD
     Route: 048
     Dates: start: 20190724, end: 20190727
  2. TAHOR [Concomitant]
     Active Substance: ATORVASTATIN CALCIUM
     Dosage: 1 DF, QD
     Route: 048
  3. FUROSEMIDE. [Concomitant]
     Active Substance: FUROSEMIDE
     Dosage: 40 MG, QD
     Route: 048
  4. NORSET [Concomitant]
     Active Substance: MIRTAZAPINE
     Dosage: UNK UNK, UNK
     Route: 048
  5. LOVENOX [Suspect]
     Active Substance: ENOXAPARIN SODIUM
     Dosage: UNK UNK, UNK
     Route: 065
  6. FLUINDIONE [Suspect]
     Active Substance: FLUINDIONE
     Dosage: 1.75 DF, QD
     Route: 048
     Dates: start: 20190727, end: 20190730
  7. CARDENSIEL [Concomitant]
     Active Substance: BISOPROLOL FUMARATE
     Dosage: 1 DF, QD
     Route: 048
  8. DIFFU K [Concomitant]
     Active Substance: POTASSIUM CHLORIDE
     Dosage: UNK UNK, UNK, UNSPECIFIED
     Route: 048
  9. AMLOR [Concomitant]
     Active Substance: AMLODIPINE BESYLATE
     Dosage: 1 DF, QD
     Route: 048
  10. PERMIXON [Concomitant]
     Active Substance: HERBALS\SAW PALMETTO
     Dosage: UNSPECIFIED
     Route: 048
  11. LOVENOX [Suspect]
     Active Substance: ENOXAPARIN SODIUM
     Indication: PARACHUTE MITRAL VALVE
     Dosage: 1 DF, QD
     Route: 058
     Dates: start: 201902
  12. INIPOMP [Concomitant]
     Active Substance: PANTOPRAZOLE SODIUM
     Dosage: UNK UNK, UNK
     Route: 048

REACTIONS (2)
  - Anaemia [Recovering/Resolving]
  - Haematoma [Recovering/Resolving]

NARRATIVE: CASE EVENT DATE: 20190730
